FAERS Safety Report 4457405-2 (Version None)
Quarter: 2004Q3

REPORT INFORMATION
  Report Type: 
  Country: None (occurrence: None)
  Receive Date: 20040922
  Receipt Date: 20040913
  Transmission Date: 20050211
  Serious: Yes (Death, Hospitalization, Other)
  Sender: FDA-Public Use
  Company Number: US-JNJFOC-20040903623

PATIENT
  Age: 34 Year
  Sex: Male

DRUGS (3)
  1. ACETAMINOPHEN [Suspect]
     Dosage: ORAL
     Route: 048
  2. DIPHENHYDRAMINE HCL [Suspect]
     Dosage: ORAL
     Route: 048
  3. METALLIC SPRAY PAINT (ALL OTHER THERAPEUTIC PRODUCTS) [Suspect]
     Dosage: INHALATION
     Route: 055

REACTIONS (6)
  - CHEMICAL ABUSER [None]
  - COMA [None]
  - DRUG TOXICITY [None]
  - HEPATIC FAILURE [None]
  - HYPOXIA [None]
  - MULTI-ORGAN FAILURE [None]
